FAERS Safety Report 19879644 (Version 1)
Quarter: 2021Q3

REPORT INFORMATION
  Report Type: Spontaneous
  Country: CA (occurrence: CA)
  Receive Date: 20210924
  Receipt Date: 20210924
  Transmission Date: 20211014
  Serious: Yes (Other)
  Sender: FDA-Public Use
  Company Number: CA-PFIZER INC-202101211783

PATIENT
  Age: 38 Year
  Sex: Female
  Weight: 98 kg

DRUGS (4)
  1. RUXIENCE [Suspect]
     Active Substance: RITUXIMAB-PVVR
     Indication: RHEUMATOID ARTHRITIS
     Dosage: 1000 MG DAY 1 AND DAY 15
     Route: 042
     Dates: start: 20210913
  2. TRELEGY ELLIPTA [Suspect]
     Active Substance: FLUTICASONE FUROATE\UMECLIDINIUM BROMIDE\VILANTEROL TRIFENATATE
     Dosage: UNK
     Route: 045
     Dates: start: 20210913
  3. CELEBREX [Concomitant]
     Active Substance: CELECOXIB
     Dosage: 200 MG, 2X/DAY
  4. VIMOVO [Concomitant]
     Active Substance: ESOMEPRAZOLE MAGNESIUM\NAPROXEN
     Dosage: 20 MG, 2X/DAY

REACTIONS (2)
  - Dyspnoea [Recovered/Resolved]
  - Heart rate increased [Unknown]

NARRATIVE: CASE EVENT DATE: 20210913
